FAERS Safety Report 9886527 (Version 1)
Quarter: 2014Q1

REPORT INFORMATION
  Report Type: Spontaneous
  Country: IT (occurrence: IT)
  Receive Date: 20140210
  Receipt Date: 20140210
  Transmission Date: 20141002
  Serious: Yes (Other)
  Sender: FDA-Public Use
  Company Number: IT-WATSON-2014-02159

PATIENT
  Age: 82 Year
  Sex: Female

DRUGS (3)
  1. ATENOLOL (UNKNOWN) [Suspect]
     Indication: PRODUCT USED FOR UNKNOWN INDICATION
     Dosage: UNK
     Route: 065
     Dates: start: 20130101, end: 20131210
  2. PREVEX                             /00646501/ [Concomitant]
     Dosage: 5 MG, UNK
     Route: 048
  3. CARDIRENE [Concomitant]
     Indication: PRODUCT USED FOR UNKNOWN INDICATION

REACTIONS (1)
  - Presyncope [Recovering/Resolving]
